FAERS Safety Report 5443564-1 (Version None)
Quarter: 2007Q3

REPORT INFORMATION
  Report Type: 
  Country: None (occurrence: None)
  Receive Date: 20070730
  Receipt Date: 20070123
  Transmission Date: 20080115
  Serious: Yes (Hospitalization)
  Sender: FDA-Public Use
  Company Number: 235316

PATIENT
  Age: 74 Year
  Sex: Female

DRUGS (1)
  1. RITUXAN [Suspect]
     Indication: B-CELL LYMPHOMA
     Dosage: 375 MG/M2, Q4W, INTRAVENOUS
     Route: 042
     Dates: start: 20061219

REACTIONS (1)
  - HYPERSENSITIVITY [None]
